FAERS Safety Report 4866975-1 (Version None)
Quarter: 2005Q4

REPORT INFORMATION
  Report Type: 
  Country: None (occurrence: None)
  Receive Date: 20051227
  Receipt Date: 20050926
  Transmission Date: 20060501
  Serious: Yes (Death, Hospitalization)
  Sender: FDA-Public Use
  Company Number: US-MERCK-0509USA04161

PATIENT
  Age: 58 Year
  Sex: Male
  Weight: 148 kg

DRUGS (8)
  1. VIOXX [Suspect]
     Indication: OSTEOARTHRITIS
     Route: 048
     Dates: start: 19990301, end: 20000904
  2. LIPITOR [Concomitant]
     Indication: BLOOD CHOLESTEROL INCREASED
     Route: 065
     Dates: start: 19950101, end: 20000904
  3. LOTENSIN [Concomitant]
     Indication: HYPERTENSION
     Route: 065
     Dates: start: 19800101, end: 20000904
  4. LOPRESSOR [Concomitant]
     Indication: HYPERTENSION
     Route: 065
     Dates: start: 19850101, end: 20000904
  5. NORVASC [Concomitant]
     Indication: CARDIAC DISORDER
     Route: 065
     Dates: start: 19850101, end: 20000904
  6. CELEBREX [Concomitant]
     Indication: OSTEOARTHRITIS
     Route: 065
     Dates: start: 19990301, end: 20000904
  7. KEFLEX [Concomitant]
     Route: 065
  8. ZOCOR [Concomitant]
     Route: 065

REACTIONS (10)
  - CARDIAC ARREST [None]
  - CELLULITIS [None]
  - CONSTIPATION [None]
  - GOUT [None]
  - INFECTION [None]
  - JOINT INJURY [None]
  - LIMB INJURY [None]
  - MYOCARDIAL INFARCTION [None]
  - OSTEONECROSIS [None]
  - PHIMOSIS [None]
